FAERS Safety Report 25014831 (Version 1)
Quarter: 2025Q1

REPORT INFORMATION
  Report Type: Spontaneous
  Country: IT (occurrence: None)
  Receive Date: 20250226
  Receipt Date: 20250226
  Transmission Date: 20250409
  Serious: Yes (Other)
  Sender: INCYTE
  Company Number: IT-002147023-NVSC2025IT030503

PATIENT
  Age: 34 Year

DRUGS (1)
  1. RUXOLITINIB [Suspect]
     Active Substance: RUXOLITINIB
     Indication: Polycythaemia vera
     Dosage: 10 MG, BID
     Route: 065

REACTIONS (5)
  - Gastrointestinal toxicity [Unknown]
  - Headache [Unknown]
  - Skin cancer [Unknown]
  - Pruritus [Unknown]
  - Superficial vein thrombosis [Unknown]
